FAERS Safety Report 21145752 (Version 1)
Quarter: 2022Q3

REPORT INFORMATION
  Report Type: Spontaneous
  Country: GB (occurrence: GB)
  Receive Date: 20220729
  Receipt Date: 20220729
  Transmission Date: 20221027
  Serious: Yes (Other)
  Sender: FDA-Public Use
  Company Number: GB-BIOVITRUM-2022GB09030

PATIENT
  Age: 79 Year
  Sex: Female

DRUGS (1)
  1. NITISINONE [Suspect]
     Active Substance: NITISINONE
     Indication: Alkaptonuria

REACTIONS (2)
  - Cataract [Unknown]
  - Amino acid level increased [Unknown]
